FAERS Safety Report 4776475-5 (Version None)
Quarter: 2005Q3

REPORT INFORMATION
  Report Type: 
  Country: None (occurrence: None)
  Receive Date: 20050922
  Receipt Date: 20050718
  Transmission Date: 20060218
  Serious: Yes (Disabling, Other)
  Sender: FDA-Public Use
  Company Number: US-MERCK-0507USA03055

PATIENT
  Age: 43 Year
  Sex: Female
  Weight: 100 kg

DRUGS (9)
  1. VIOXX [Suspect]
     Indication: OSTEOARTHRITIS
     Route: 048
     Dates: start: 20000101, end: 20030101
  2. ESTRADIOL [Concomitant]
     Route: 065
  3. FLEXERIL [Concomitant]
     Route: 065
  4. CALCIUM (UNSPECIFIED) [Concomitant]
     Route: 065
  5. ZOLOFT [Concomitant]
     Route: 065
  6. ELAVIL [Concomitant]
     Route: 065
  7. ZANTAC [Concomitant]
     Route: 065
  8. HYDROCHLOROTHIAZIDE [Concomitant]
     Route: 065
  9. ACIPHEX [Concomitant]
     Route: 065

REACTIONS (8)
  - BACK PAIN [None]
  - DEPRESSION [None]
  - DYSPNOEA [None]
  - HEART RATE IRREGULAR [None]
  - LIMB INJURY [None]
  - MYOCARDIAL INFARCTION [None]
  - PAIN [None]
  - PARALYSIS [None]
